FAERS Safety Report 7851577-5 (Version None)
Quarter: 2011Q4

REPORT INFORMATION
  Report Type: 
  Country: None (occurrence: None)
  Receive Date: 20111026
  Receipt Date: 20111019
  Transmission Date: 20120403
  Serious: Yes (Other)
  Sender: FDA-Public Use
  Company Number: AU-AMGEN-AUSSP2011037512

PATIENT
  Age: 69 Year
  Sex: Male

DRUGS (9)
  1. NPLATE [Suspect]
     Indication: IDIOPATHIC THROMBOCYTOPENIC PURPURA
     Dosage: 10 MUG, UNK
  2. NPLATE [Suspect]
     Dosage: 600 MUG, ONE TIME DOSE
     Dates: start: 20091023
  3. NPLATE [Suspect]
     Dosage: 330 MUG, ONE TIME DOSE
     Dates: start: 20090923, end: 20090923
  4. NPLATE [Suspect]
     Dosage: 670 MUG, ONE TIME DOSE
     Dates: start: 20091030, end: 20091030
  5. NPLATE [Suspect]
     Dosage: 80 MUG, ONE TIME DOSE
     Dates: start: 20090826, end: 20090826
  6. NPLATE [Suspect]
     Dosage: 170 MUG, ONE TIME DOSE
     Dates: start: 20090909, end: 20090909
  7. NPLATE [Suspect]
     Dosage: 410 MUG, ONE TIME DOSE
     Dates: start: 20090930, end: 20090930
  8. NPLATE [Suspect]
     Dosage: 490 MUG, ONE TIME DOSE
     Dates: start: 20091007, end: 20091007
  9. NPLATE [Suspect]
     Dosage: 850 MUG, QWK
     Dates: start: 20090411, end: 20100630

REACTIONS (2)
  - PLATELET COUNT DECREASED [None]
  - BONE MARROW RETICULIN FIBROSIS [None]
